FAERS Safety Report 10519253 (Version 4)
Quarter: 2015Q2

REPORT INFORMATION
  Report Type: Report from Study
  Country: US (occurrence: US)
  Receive Date: 20141015
  Receipt Date: 20150505
  Transmission Date: 20150821
  Serious: Yes (Life-Threatening)
  Sender: FDA-Public Use
  Company Number: US-ACTELION-A-US2013-89742

PATIENT
  Age: 59 Year
  Sex: Female

DRUGS (2)
  1. TRACLEER [Suspect]
     Active Substance: BOSENTAN\BOSENTAN MONOHYDRATE
     Indication: PULMONARY ARTERIAL HYPERTENSION
     Dosage: UNK
     Route: 048
  2. TRACLEER [Suspect]
     Active Substance: BOSENTAN\BOSENTAN MONOHYDRATE
     Dosage: 62.5 MG, QD
     Route: 048

REACTIONS (23)
  - Emotional distress [Unknown]
  - Muscle tightness [Unknown]
  - Thyroid disorder [Unknown]
  - Amnesia [Unknown]
  - Abdominal pain [Unknown]
  - Rhinorrhoea [Unknown]
  - Dizziness [Unknown]
  - Chest discomfort [Unknown]
  - Cough [Unknown]
  - Ocular icterus [Unknown]
  - Dissociation [Unknown]
  - Vitamin D decreased [Unknown]
  - Respiratory disorder [Unknown]
  - Mood swings [Unknown]
  - Malaise [Unknown]
  - Nausea [Not Recovered/Not Resolved]
  - Skin discolouration [Unknown]
  - Abdominal distension [Unknown]
  - Vomiting [Unknown]
  - Peripheral swelling [Unknown]
  - Local swelling [Unknown]
  - Nasal congestion [Unknown]
  - Pyrexia [Unknown]
